FAERS Safety Report 16525048 (Version 1)
Quarter: 2019Q3

REPORT INFORMATION
  Report Type: Spontaneous
  Country: BG (occurrence: BG)
  Receive Date: 20190702
  Receipt Date: 20190702
  Transmission Date: 20191004
  Serious: Yes (Other)
  Sender: FDA-Public Use
  Company Number: PHHY2019BG142658

PATIENT
  Sex: Male

DRUGS (4)
  1. METHYLPREDNISOLONE. [Suspect]
     Active Substance: METHYLPREDNISOLONE
     Indication: CANDLE SYNDROME
     Dosage: 1 MG/KG, QD (HIGH DOSES)
     Route: 065
  2. BARICITINIB [Concomitant]
     Active Substance: BARICITINIB
     Indication: CANDLE SYNDROME
     Dosage: 6 MG, QD, FOR THE FIRST 3 DAYS
     Route: 065
  3. METHYLPREDNISOLONE. [Suspect]
     Active Substance: METHYLPREDNISOLONE
     Dosage: 0.1 MG/KG, QD
     Route: 065
  4. BARICITINIB [Concomitant]
     Active Substance: BARICITINIB
     Dosage: 8 MG, QD
     Route: 065

REACTIONS (16)
  - Increased appetite [Recovered/Resolved]
  - Vomiting [Recovered/Resolved]
  - Product use in unapproved indication [Unknown]
  - Failure to thrive [Unknown]
  - Pyrexia [Unknown]
  - Myalgia [Recovered/Resolved]
  - Gait disturbance [Recovered/Resolved]
  - Fatigue [Recovered/Resolved]
  - Headache [Recovered/Resolved]
  - Abdominal pain upper [Recovered/Resolved]
  - Hypertension [Unknown]
  - Growth retardation [Unknown]
  - Drug ineffective [Unknown]
  - Inflammation [Unknown]
  - C-reactive protein increased [Unknown]
  - Blood cholesterol increased [Recovered/Resolved]
